APPROVED DRUG PRODUCT: MORPHINE SULFATE
Active Ingredient: MORPHINE SULFATE
Strength: 200MG
Dosage Form/Route: TABLET, EXTENDED RELEASE;ORAL
Application: A077855 | Product #002
Applicant: NESHER PHARMACEUTICALS USA LLC
Approved: Sep 27, 2007 | RLD: No | RS: No | Type: DISCN